FAERS Safety Report 10460227 (Version 14)
Quarter: 2015Q2

REPORT INFORMATION
  Report Type: Report from Study
  Country: US (occurrence: US)
  Receive Date: 20140917
  Receipt Date: 20150514
  Transmission Date: 20150821
  Serious: Yes (Hospitalization, Other)
  Sender: FDA-Public Use
  Company Number: US-ACTELION-A-NJ2014-105100

PATIENT
  Age: 67 Year
  Sex: Female

DRUGS (24)
  1. ADCIRCA [Concomitant]
     Active Substance: TADALAFIL
     Dosage: 40 MG, UNK
  2. REMODULIN [Concomitant]
     Active Substance: TREPROSTINIL
     Dosage: 5 MG/ML, UNK
  3. DULERA [Concomitant]
     Active Substance: FORMOTEROL FUMARATE DIHYDRATE\MOMETASONE FUROATE
     Dosage: 100-5 MCG
  4. FLUTICASONE PROPIONATE. [Concomitant]
     Active Substance: FLUTICASONE PROPIONATE
     Dosage: 50 MCG, UNK
  5. K-DUR [Concomitant]
     Active Substance: POTASSIUM CHLORIDE
     Dosage: 20 MEQ, UNK
  6. VITAMIN D3 [Concomitant]
     Active Substance: CHOLECALCIFEROL
     Dosage: 1000 U, UNK
  7. LANOXIN [Concomitant]
     Active Substance: DIGOXIN
     Dosage: 125 MCG, UNK
  8. MACITENTAN [Suspect]
     Active Substance: MACITENTAN
     Indication: PULMONARY HYPERTENSION
     Dosage: 10 MG, QD
     Route: 048
     Dates: start: 20140113
  9. SYNTHROID [Concomitant]
     Active Substance: LEVOTHYROXINE SODIUM
     Dosage: 200 UNK, UNK
  10. RESTASIS [Concomitant]
     Active Substance: CYCLOSPORINE
     Dosage: 1 UNK, UNK
  11. UBIQUINOL [Concomitant]
     Dosage: 100 MG, UNK
  12. PROTONIX [Concomitant]
     Active Substance: PANTOPRAZOLE SODIUM
     Dosage: 40 MG, UNK
  13. FLUCONAZOLE. [Concomitant]
     Active Substance: FLUCONAZOLE
  14. DIGOXIN. [Concomitant]
     Active Substance: DIGOXIN
     Dosage: 125 MG, UNK
  15. KLOR-CON [Concomitant]
     Active Substance: POTASSIUM CHLORIDE
     Dosage: 20 MEQ, UNK
  16. HEPARIN [Concomitant]
     Active Substance: HEPARIN SODIUM
  17. SPIRONOLACTONE. [Concomitant]
     Active Substance: SPIRONOLACTONE
     Dosage: 25 MG, UNK
  18. OXYGEN. [Concomitant]
     Active Substance: OXYGEN
     Dosage: 4 L, UNK
  19. PEPCID [Concomitant]
     Active Substance: FAMOTIDINE
     Dosage: 20 MG, UNK
  20. ASPIRIN. [Concomitant]
     Active Substance: ASPIRIN
     Dosage: 325 MG, UNK
  21. LASIX [Concomitant]
     Active Substance: FUROSEMIDE
     Dosage: 80 MG, UNK
  22. CHOLECALCIFEROL [Concomitant]
     Active Substance: CHOLECALCIFEROL
     Dosage: 1000 U, QD
  23. CARNITOR [Concomitant]
     Active Substance: LEVOCARNITINE
     Dosage: 1000 MG, UNK
     Route: 048
  24. VITAMIN C [Concomitant]
     Active Substance: ASCORBIC ACID
     Dosage: 500 UNK, UNK

REACTIONS (38)
  - Device related sepsis [Unknown]
  - Ascites [Unknown]
  - Abdominal pain [Unknown]
  - Weight decreased [Unknown]
  - Chest pain [Unknown]
  - Diarrhoea [Unknown]
  - Procedural complication [Unknown]
  - Bacteraemia [Unknown]
  - Cellulitis [Unknown]
  - Infusion site swelling [Unknown]
  - Infusion site pain [Unknown]
  - Device related infection [Unknown]
  - Administration site discharge [Unknown]
  - Discomfort [Unknown]
  - Transfusion [Unknown]
  - Contusion [Unknown]
  - Catheter placement [Unknown]
  - Drug dose omission [Unknown]
  - Splenomegaly [Unknown]
  - Thrombosis in device [Unknown]
  - Infection [Unknown]
  - Joint swelling [Unknown]
  - Central venous catheterisation [Unknown]
  - Sepsis [Unknown]
  - Angina pectoris [Unknown]
  - Erythema [Unknown]
  - Paracentesis [Unknown]
  - Hypotension [Unknown]
  - Asthenia [Unknown]
  - Liver disorder [Unknown]
  - Deep vein thrombosis [Unknown]
  - Thrombosis [Unknown]
  - Fatigue [Unknown]
  - Nasal congestion [Unknown]
  - Oedema peripheral [Unknown]
  - Anal fungal infection [Unknown]
  - Peripheral swelling [Unknown]
  - Weight increased [Unknown]

NARRATIVE: CASE EVENT DATE: 20140904
